FAERS Safety Report 26125891 (Version 1)
Quarter: 2025Q4

REPORT INFORMATION
  Report Type: Spontaneous
  Country: JP (occurrence: JP)
  Receive Date: 20251205
  Receipt Date: 20251205
  Transmission Date: 20260118
  Serious: Yes (Other)
  Sender: MERCK SHARP & DOHME LLC
  Company Number: JP-009507513-2355723

PATIENT
  Age: 6 Decade
  Sex: Female

DRUGS (7)
  1. KEYTRUDA [Suspect]
     Active Substance: PEMBROLIZUMAB
     Indication: Uterine cancer
  2. LENVATINIB [Suspect]
     Active Substance: LENVATINIB
     Indication: Uterine cancer
  3. LENVATINIB [Suspect]
     Active Substance: LENVATINIB
     Indication: Uterine cancer
  4. LENVATINIB [Suspect]
     Active Substance: LENVATINIB
     Indication: Uterine cancer
  5. LENVATINIB [Suspect]
     Active Substance: LENVATINIB
     Indication: Uterine cancer
  6. LENVATINIB [Suspect]
     Active Substance: LENVATINIB
     Indication: Uterine cancer
  7. LENVATINIB [Suspect]
     Active Substance: LENVATINIB
     Indication: Uterine cancer

REACTIONS (10)
  - Pulmonary embolism [Unknown]
  - Palmar-plantar erythrodysaesthesia syndrome [Unknown]
  - Malaise [Unknown]
  - Malignant neoplasm progression [Unknown]
  - Chills [Unknown]
  - Chills [Unknown]
  - Pyrexia [Unknown]
  - Pruritus [Unknown]
  - Vena cava thrombosis [Unknown]
  - Palmar-plantar erythrodysaesthesia syndrome [Unknown]
